FAERS Safety Report 4433991-3 (Version None)
Quarter: 2004Q3

REPORT INFORMATION
  Report Type: 
  Country: None (occurrence: None)
  Receive Date: 20040825
  Receipt Date: 20040812
  Transmission Date: 20050211
  Serious: Yes (Disabling, Other)
  Sender: FDA-Public Use
  Company Number: 2004056325

PATIENT
  Sex: Female

DRUGS (5)
  1. NEURONTIN [Suspect]
     Indication: ILL-DEFINED DISORDER
     Dosage: 900 MG (300 MG, 3 IN 1 D)
  2. MORPHINE SULFATE [Suspect]
     Indication: ILL-DEFINED DISORDER
     Dosage: 30 MG (30 MG, 1 IN 1 D)
  3. MACROGOL (MACROGOL) [Suspect]
     Indication: ILL-DEFINED DISORDER
     Dosage: (2 IN 1 D)
  4. ALL OTHER THERAPEUTIC PRODUCTS) [Suspect]
     Indication: ILL-DEFINED DISORDER
     Dosage: (3 IN 1 D)
  5. THYROID HORMONES (THYROID HORMONES) [Suspect]
     Indication: THYROID DISORDER
     Dosage: (1 IN 1 D)

REACTIONS (3)
  - NERVE INJURY [None]
  - REFLEX SYMPATHETIC DYSTROPHY [None]
  - UPPER LIMB FRACTURE [None]
